FAERS Safety Report 5515696-0 (Version None)
Quarter: 2007Q4

REPORT INFORMATION
  Report Type: 
  Country: None (occurrence: None)
  Receive Date: 20071113
  Receipt Date: 20070829
  Transmission Date: 20080405
  Serious: No
  Sender: FDA-Public Use
  Company Number: A0677386A

PATIENT
  Sex: Male

DRUGS (3)
  1. COREG [Suspect]
     Indication: DRUG USE FOR UNKNOWN INDICATION
     Dosage: 18.75MG TWICE PER DAY
     Route: 048
  2. CARTIA XT [Concomitant]
  3. DIABETES MEDICATION [Concomitant]

REACTIONS (2)
  - DIPLOPIA [None]
  - EYELID PTOSIS [None]
